FAERS Safety Report 13167416 (Version 1)
Quarter: 2017Q1

REPORT INFORMATION
  Report Type: Spontaneous
  Country: US (occurrence: US)
  Receive Date: 20170131
  Receipt Date: 20170131
  Transmission Date: 20170428
  Serious: No
  Sender: FDA-Public Use
  Company Number: US-PFIZER INC-2017036227

PATIENT
  Age: 69 Year
  Sex: Female
  Weight: 58.5 kg

DRUGS (2)
  1. NEURONTIN [Suspect]
     Active Substance: GABAPENTIN
     Dosage: 900 MG, 3X/DAY
  2. NEURONTIN [Suspect]
     Active Substance: GABAPENTIN
     Indication: PARTIAL SEIZURES
     Dosage: UNK, DAILY (TAKES NINE 300MG CAPS THE DAY, BUT HAS BEEN TAKING 4 TO 6 CAPS A DAY)
     Route: 048

REACTIONS (3)
  - Intentional product misuse [Not Recovered/Not Resolved]
  - Feeling jittery [Not Recovered/Not Resolved]
  - Condition aggravated [Not Recovered/Not Resolved]
